FAERS Safety Report 5817136-0 (Version None)
Quarter: 2008Q3

REPORT INFORMATION
  Report Type: 
  Country: None (occurrence: None)
  Receive Date: 20080722
  Receipt Date: 20080710
  Transmission Date: 20090109
  Serious: Yes (Other)
  Sender: FDA-Public Use
  Company Number: US-ROCHE-575326

PATIENT
  Sex: Male

DRUGS (6)
  1. PEG-INTERFERON A-2A (RO 25-8310) [Suspect]
     Indication: HEPATITIS C
     Dosage: FORMULATION: PREFILLED SYRINGE
     Route: 065
     Dates: start: 20080627
  2. RIBAVIRIN [Suspect]
     Indication: HEPATITIS C
     Route: 065
     Dates: start: 20080627
  3. NEOMYCIN SULFATE TAB [Concomitant]
     Dosage: DOSE: 4 DOSE FORMS THRICE DAILY
  4. LACTULOSE [Concomitant]
  5. CELEXA [Concomitant]
     Indication: ANTIDEPRESSANT THERAPY
  6. MILK THISTLE [Concomitant]
     Dosage: USUAL DOSE RPTD AS 80 MG/ DAY

REACTIONS (1)
  - HYPERAMMONAEMIA [None]
